FAERS Safety Report 6384122-4 (Version None)
Quarter: 2009Q4

REPORT INFORMATION
  Report Type: 
  Country: None (occurrence: None)
  Receive Date: 20091001
  Receipt Date: 20090928
  Transmission Date: 20100525
  Serious: Yes (Life-Threatening)
  Sender: FDA-Public Use
  Company Number: US-ROCHE-656604

PATIENT
  Sex: Male

DRUGS (8)
  1. CAPECITABINE [Suspect]
     Route: 048
     Dates: start: 20070129, end: 20070309
  2. OXALIPLATIN [Suspect]
     Route: 041
     Dates: start: 20070226, end: 20070226
  3. GLUTATHIONE [Concomitant]
  4. OMEPRAZOLE [Concomitant]
  5. VITAMINE D [Concomitant]
  6. VYTORIN [Concomitant]
  7. AMLODIPINE [Concomitant]
  8. ASPIRIN [Concomitant]

REACTIONS (4)
  - ACUTE MYELOID LEUKAEMIA [None]
  - ANASTOMOTIC LEAK [None]
  - OESOPHAGEAL FISTULA [None]
  - WOUND INFECTION [None]
